FAERS Safety Report 7844187-7 (Version None)
Quarter: 2011Q4

REPORT INFORMATION
  Report Type: 
  Country: None (occurrence: None)
  Receive Date: 20111025
  Receipt Date: 20111011
  Transmission Date: 20120403
  Serious: Yes (Other)
  Sender: FDA-Public Use
  Company Number: US-ELI_LILLY_AND_COMPANY-US201103001407

PATIENT
  Sex: Female
  Weight: 46.712 kg

DRUGS (6)
  1. FORTEO [Suspect]
     Dosage: 20 UG, QD
     Dates: end: 20110930
  2. LISINOPRIL [Concomitant]
     Dosage: UNK
  3. DILTIAZEM HCL [Concomitant]
     Dosage: UNK
  4. DILTIAZEM HCL [Concomitant]
     Indication: BLOOD PRESSURE
     Dosage: UNK
     Dates: end: 20110625
  5. FORTEO [Suspect]
     Indication: OSTEOPOROSIS
     Dosage: 20 UG, DAILY (1/D)
     Dates: start: 20110109
  6. LISINOPRIL [Concomitant]
     Indication: BLOOD PRESSURE
     Dosage: UNK
     Dates: end: 20110625

REACTIONS (14)
  - ASTHENIA [None]
  - MUSCLE SPASMS [None]
  - MUSCULAR WEAKNESS [None]
  - FATIGUE [None]
  - DEMENTIA [None]
  - MUSCLE ATROPHY [None]
  - COGNITIVE DISORDER [None]
  - DECREASED APPETITE [None]
  - HYPOTENSION [None]
  - HEARING IMPAIRED [None]
  - GAIT DISTURBANCE [None]
  - HEART RATE DECREASED [None]
  - WEIGHT DECREASED [None]
  - BLOOD PRESSURE FLUCTUATION [None]
